FAERS Safety Report 5743352-2 (Version None)
Quarter: 2008Q2

REPORT INFORMATION
  Report Type: 
  Country: None (occurrence: None)
  Receive Date: 20080520
  Receipt Date: 20080508
  Transmission Date: 20081010
  Serious: Yes (Life-Threatening, Hospitalization)
  Sender: FDA-Public Use
  Company Number: GB-RANBAXY-2008RR-15063

PATIENT

DRUGS (11)
  1. SIMVASTATIN [Suspect]
     Indication: HYPERCHOLESTEROLAEMIA
     Dosage: 40 MG, QD
     Route: 048
     Dates: start: 20050711
  2. ASPIRIN [Concomitant]
     Indication: CARDIOVASCULAR EVENT PROPHYLAXIS
     Dosage: 75 MG, QD
     Route: 065
     Dates: start: 20040116
  3. BECLOMETHASONE DIPROPIONATE [Concomitant]
     Indication: ASTHMA
     Dosage: 200 UG, UNK
     Route: 065
     Dates: start: 20041013
  4. CLOPIDOGREL [Concomitant]
     Indication: CARDIOVASCULAR EVENT PROPHYLAXIS
     Dosage: 75 MG, QD
     Route: 065
     Dates: start: 20070808
  5. DOXAZOSIN MESYLATE [Concomitant]
     Indication: HYPERTENSION
     Dosage: 8 MG, QD
     Route: 065
     Dates: start: 20040519
  6. DOXAZOSIN MESYLATE [Concomitant]
     Dosage: 4 MG, QD
     Dates: start: 20071101
  7. GTN-S [Concomitant]
     Indication: ANGINA PECTORIS
     Dosage: 400 UG, UNK
     Route: 065
     Dates: start: 20020121
  8. NICORANDIL [Concomitant]
     Indication: MYOCARDIAL ISCHAEMIA
     Dosage: 20 MG, QD
     Route: 065
     Dates: start: 20070522
  9. RAMIPRIL [Concomitant]
     Indication: HYPERTENSION
     Dosage: 5 MG, QD
     Route: 065
     Dates: start: 20070411
  10. LACTULOSE [Concomitant]
     Indication: CONSTIPATION
     Dosage: 20 ML, QD
     Dates: start: 20071102
  11. DILTIAZEM [Concomitant]
     Indication: ANGINA PECTORIS
     Dosage: 180 MG, QD
     Dates: start: 20071109

REACTIONS (4)
  - ACUTE MYOCARDIAL INFARCTION [None]
  - CARDIOVASCULAR DISORDER [None]
  - CONJUNCTIVITIS ALLERGIC [None]
  - DEPRESSION [None]
